FAERS Safety Report 22064791 (Version 1)
Quarter: 2023Q1

REPORT INFORMATION
  Report Type: Report from Study
  Country: US (occurrence: None)
  Receive Date: 20230306
  Receipt Date: 20230306
  Transmission Date: 20230417
  Serious: Yes (Hospitalization)
  Sender: FDA-Public Use
  Company Number: US-ROCHE-3299219

PATIENT
  Age: 59 Year
  Sex: Female
  Weight: 48.9 kg

DRUGS (3)
  1. OBINUTUZUMAB [Suspect]
     Active Substance: OBINUTUZUMAB
     Indication: Chronic lymphocytic leukaemia
     Dosage: LAST ADMINISTERED DATE, 25/MAR/2020, 100 MG IV ON DAY 1, CYCLE 1, 900 MG IV ON DAY 2, CYCLE 1, 1000
     Route: 042
     Dates: start: 20200311
  2. VENETOCLAX [Suspect]
     Active Substance: VENETOCLAX
     Indication: Chronic lymphocytic leukaemia
     Dosage: 20 MG PO QD DAYS 1-7 CYCLE 3, 50 MG PO QD DAYS 8-14, CYCLE 3, 100 MG PO QD DAYS 15-21, CYCLE 3 200
     Route: 048
     Dates: start: 20200311
  3. IBRUTINIB [Suspect]
     Active Substance: IBRUTINIB
     Indication: Chronic lymphocytic leukaemia
     Dosage: LAST ADMINISTERED DATE ON 01/APR/2020, 420 MG PO QD ON DAYS 1-28, CYCLES 1-19
     Route: 048
     Dates: start: 20200311

REACTIONS (1)
  - COVID-19 [Recovered/Resolved]

NARRATIVE: CASE EVENT DATE: 20200413
